FAERS Safety Report 12125804 (Version 1)
Quarter: 2016Q1

REPORT INFORMATION
  Report Type: Spontaneous
  Country: US (occurrence: None)
  Receive Date: 20160226
  Receipt Date: 20160226
  Transmission Date: 20160526
  Serious: Yes (Life-Threatening, Hospitalization)
  Sender: FDA-Public Use
  Company Number: None

PATIENT
  Age: 20 Year
  Sex: Female
  Weight: 72.58 kg

DRUGS (1)
  1. SPIRONOLACTONE 50MG AMNEAL PHARMACY [Suspect]
     Active Substance: SPIRONOLACTONE
     Indication: ACNE
     Dosage: 60 PILLS BID ORAL
     Route: 048
     Dates: start: 20151130, end: 20160216

REACTIONS (1)
  - Depression suicidal [None]

NARRATIVE: CASE EVENT DATE: 20160215
